FAERS Safety Report 7483630-2 (Version None)
Quarter: 2011Q2

REPORT INFORMATION
  Report Type: 
  Country: None (occurrence: None)
  Receive Date: 20110517
  Receipt Date: 20110511
  Transmission Date: 20111010
  Serious: No
  Sender: FDA-Public Use
  Company Number: US-PFIZER INC-2011102164

PATIENT
  Sex: Female

DRUGS (4)
  1. TIKOSYN [Suspect]
     Indication: ATRIAL FIBRILLATION
  2. TIKOSYN [Suspect]
     Indication: ARRHYTHMIA
     Dosage: 250 UG, 2X/DAY
     Route: 048
  3. FLECAINIDE ACETATE [Suspect]
     Indication: ARRHYTHMIA
  4. FLECAINIDE ACETATE [Suspect]
     Indication: ATRIAL FIBRILLATION
     Dosage: UNK

REACTIONS (2)
  - HYPERTENSION [None]
  - RENAL PAIN [None]
